FAERS Safety Report 8560513-8 (Version None)
Quarter: 2012Q3

REPORT INFORMATION
  Report Type: 
  Country: None (occurrence: None)
  Receive Date: 20120802
  Receipt Date: 20120727
  Transmission Date: 20120928
  Serious: Yes (Hospitalization)
  Sender: FDA-Public Use
  Company Number: US-AMGEN-USASP2012047569

PATIENT
  Sex: Male

DRUGS (2)
  1. PROCRIT [Suspect]
     Dosage: UNK
  2. PROCRIT [Suspect]
     Indication: ANAEMIA
     Dosage: UNK
     Route: 058
     Dates: start: 20111101

REACTIONS (5)
  - RASH PRURITIC [None]
  - BLOOD COUNT ABNORMAL [None]
  - HEADACHE [None]
  - DIZZINESS [None]
  - FALL [None]
